FAERS Safety Report 6554985-8 (Version None)
Quarter: 2010Q1

REPORT INFORMATION
  Report Type: 
  Country: None (occurrence: None)
  Receive Date: 20100126
  Receipt Date: 20100126
  Transmission Date: 20100710
  Serious: Yes (Hospitalization, Disabling)
  Sender: FDA-Public Use
  Company Number: None

PATIENT
  Age: 66 Year
  Sex: Male

DRUGS (2)
  1. LOVENOX [Suspect]
     Indication: ACUTE MYOCARDIAL INFARCTION
     Dosage: 110 MG Q24H SQ
     Route: 058
     Dates: start: 20091107, end: 20091121
  2. ASPIRIN [Concomitant]

REACTIONS (4)
  - CATHETER SITE HAEMORRHAGE [None]
  - COAGULATION TEST ABNORMAL [None]
  - IMPLANT SITE HAEMORRHAGE [None]
  - WEIGHT DECREASED [None]
